FAERS Safety Report 8238405-3 (Version None)
Quarter: 2012Q1

REPORT INFORMATION
  Report Type: 
  Country: None (occurrence: None)
  Receive Date: 20120327
  Receipt Date: 20120314
  Transmission Date: 20120608
  Serious: Yes (Death)
  Sender: FDA-Public Use
  Company Number: JP-ROCHE-1052296

PATIENT
  Age: 95 Year
  Sex: Female

DRUGS (11)
  1. FAMOTIDINE [Concomitant]
     Route: 048
  2. PURSENNID [Concomitant]
     Route: 048
  3. ALTEPLASE [Suspect]
     Indication: EMBOLIC STROKE
     Route: 042
     Dates: start: 20111219, end: 20111219
  4. IFENPRODIL TARTRATE [Concomitant]
     Route: 048
  5. EDARAVONE [Suspect]
     Indication: EMBOLIC STROKE
     Route: 041
     Dates: start: 20111219, end: 20111219
  6. SELBEX [Concomitant]
     Route: 048
  7. NIKORAN [Concomitant]
     Route: 048
  8. ISOSORBIDE MONONITRATE [Concomitant]
     Route: 048
  9. D-ALFA [Concomitant]
     Route: 048
  10. DEPAS [Concomitant]
     Route: 048
  11. ADETPHOS KOWA [Concomitant]
     Route: 048

REACTIONS (2)
  - MYOCARDIAL INFARCTION [None]
  - BLOOD CREATININE INCREASED [None]
